FAERS Safety Report 13094203 (Version 1)
Quarter: 2017Q1

REPORT INFORMATION
  Report Type: Spontaneous
  Country: MY (occurrence: MY)
  Receive Date: 20170106
  Receipt Date: 20170106
  Transmission Date: 20170428
  Serious: Yes (Life-Threatening)
  Sender: FDA-Public Use
  Company Number: MY-PIRAMAL ENTERPRISES LTD-2013-PEL-000221

PATIENT

DRUGS (11)
  1. SOJOURN [Suspect]
     Active Substance: SEVOFLURANE
     Dosage: 1-2%, SURGERY 2
  2. ATRACURIUM [Concomitant]
     Active Substance: ATRACURIUM
     Dosage: 35 MG, SURGERY 2
     Route: 042
  3. ANESOXYN [Concomitant]
     Active Substance: NITROUS OXIDE\OXYGEN
     Dosage: 50% OXYGEN, 50% NITROUS OXIDE, SURGERY 2
  4. ETOMIDATE. [Concomitant]
     Active Substance: ETOMIDATE
     Dosage: 14 MG, SURGERY 2
     Route: 042
  5. ANESOXYN [Concomitant]
     Active Substance: NITROUS OXIDE\OXYGEN
     Indication: ANAESTHESIA
     Dosage: 50% OXYGEN, 50% NITROUS OXIDE, SURGERY 1
  6. PROPOVAN INJECTION 20 ML [Suspect]
     Active Substance: PROPOFOL
     Indication: ANAESTHESIA
     Dosage: 150 MG, SURGERY 1
     Route: 042
  7. FENTANYL. [Concomitant]
     Active Substance: FENTANYL
     Indication: INDUCTION OF ANAESTHESIA
     Dosage: 100 ?G, SURGERY 1
     Route: 042
  8. ETOMIDATE. [Concomitant]
     Active Substance: ETOMIDATE
     Indication: ANAESTHESIA
     Dosage: 14 MG, SURGERY 1
     Route: 042
  9. SOJOURN [Suspect]
     Active Substance: SEVOFLURANE
     Indication: ANAESTHESIA
     Dosage: 1%, SURGERY 1
  10. FENTANYL. [Concomitant]
     Active Substance: FENTANYL
     Dosage: 100 ?G, SURGERY 2
     Route: 042
  11. ATRACURIUM [Concomitant]
     Active Substance: ATRACURIUM
     Indication: ANAESTHESIA
     Dosage: 35 MG, SURGERY 1
     Route: 042

REACTIONS (3)
  - Bundle branch block left [Recovered/Resolved]
  - Left ventricular hypertrophy [None]
  - Nodal rhythm [None]
